FAERS Safety Report 16012821 (Version 1)
Quarter: 2019Q1

REPORT INFORMATION
  Report Type: Spontaneous
  Country: None (occurrence: US)
  Receive Date: 20190227
  Receipt Date: 20190227
  Transmission Date: 20190418
  Serious: No
  Sender: FDA-Public Use
  Company Number: US-MEDAC PHARMA, INC.-2063269

PATIENT
  Age: 57 Year
  Sex: Male

DRUGS (1)
  1. RASUVO [Suspect]
     Active Substance: METHOTREXATE SODIUM
     Indication: ARTHRITIS

REACTIONS (3)
  - Product dose omission [Unknown]
  - Device issue [Unknown]
  - Arthritis [Unknown]

NARRATIVE: CASE EVENT DATE: 20190203
